FAERS Safety Report 10014836 (Version 1)
Quarter: 2014Q1

REPORT INFORMATION
  Report Type: Report from Study
  Country: US (occurrence: US)
  Receive Date: 20140317
  Receipt Date: 20140317
  Transmission Date: 20141002
  Serious: Yes (Hospitalization, Other)
  Sender: FDA-Public Use
  Company Number: PHEH2014US005217

PATIENT
  Sex: Female

DRUGS (2)
  1. TEGRETOL [Suspect]
     Dosage: 100 MG, UNK
     Route: 048
  2. TEGRETOL [Suspect]
     Dosage: 200 MG, UNK
     Route: 048

REACTIONS (2)
  - Convulsion [Unknown]
  - Fall [Unknown]
